FAERS Safety Report 4945381-5 (Version None)
Quarter: 2006Q1

REPORT INFORMATION
  Report Type: 
  Country: None (occurrence: None)
  Receive Date: 20060315
  Receipt Date: 20060315
  Transmission Date: 20060701
  Serious: No
  Sender: FDA-Public Use
  Company Number: None

PATIENT
  Age: 74 Year
  Sex: Male
  Weight: 72.7 kg

DRUGS (13)
  1. PREDNISONE 5MG [Suspect]
     Indication: CHRONIC OBSTRUCTIVE PULMONARY DISEASE
     Dosage: 40MG PO QD X 4, 30 MG PO X 4, THEN 10 MG PO X 10
     Route: 048
     Dates: start: 20051018, end: 20051020
  2. DM/GUAIFENESIN 10-100MG/5ML [Suspect]
     Indication: COUGH
     Dosage: 10ML PO Q 6HOURS
     Route: 048
     Dates: start: 20051018, end: 20051020
  3. FLUNISOLIDE [Concomitant]
  4. IPRATROPIUM BROMIDE [Concomitant]
  5. ALBUTEROL SULFATE AND IPRATROPIUM BROMIDE [Concomitant]
  6. OMEPRAZOLE [Concomitant]
  7. FORMOTEROL [Concomitant]
  8. SIMVASTATIN [Concomitant]
  9. TERAZOSIN HCL [Concomitant]
  10. ALENDRONATE SODIUM [Concomitant]
  11. MONTELUKAST [Concomitant]
  12. QUININE SULFATE [Concomitant]
  13. GATOFLOXACIN [Concomitant]

REACTIONS (2)
  - HALLUCINATION, VISUAL [None]
  - PSYCHOTIC DISORDER [None]
